FAERS Safety Report 11621432 (Version 10)
Quarter: 2017Q2

REPORT INFORMATION
  Report Type: Report from Study
  Country: BR (occurrence: BR)
  Receive Date: 20151012
  Receipt Date: 20170616
  Transmission Date: 20170829
  Serious: Yes (Hospitalization, Other)
  Sender: FDA-Public Use
  Company Number: PHHY2015BR117452

PATIENT
  Age: 40 Year
  Sex: Male
  Weight: 83 kg

DRUGS (2)
  1. GILENYA [Suspect]
     Active Substance: FINGOLIMOD HYDROCHLORIDE
     Indication: MULTIPLE SCLEROSIS
     Dosage: 0.5 MG, QD
     Route: 048
     Dates: start: 20140720
  2. FINGOLIMOD HYDROCHLORIDE [Suspect]
     Active Substance: FINGOLIMOD HYDROCHLORIDE
     Indication: MULTIPLE SCLEROSIS
     Dosage: UNK
     Route: 065
     Dates: start: 201704

REACTIONS (26)
  - Gait disturbance [Recovered/Resolved]
  - Condition aggravated [Recovering/Resolving]
  - Visual impairment [Not Recovered/Not Resolved]
  - Choking [Recovering/Resolving]
  - Asthenia [Recovering/Resolving]
  - Urinary incontinence [Unknown]
  - Vision blurred [Not Recovered/Not Resolved]
  - Paresis [Recovering/Resolving]
  - Hypokinesia [Not Recovered/Not Resolved]
  - Diplopia [Recovering/Resolving]
  - Pain [Unknown]
  - Headache [Recovering/Resolving]
  - Multiple sclerosis relapse [Recovered/Resolved]
  - Dysphagia [Recovering/Resolving]
  - Uhthoff^s phenomenon [Unknown]
  - Speech disorder [Not Recovered/Not Resolved]
  - Fatigue [Recovering/Resolving]
  - Hypoaesthesia [Recovering/Resolving]
  - Dysarthria [Recovering/Resolving]
  - Chest pain [Recovering/Resolving]
  - Hemiplegia [Recovered/Resolved]
  - Fall [Not Recovered/Not Resolved]
  - Paraesthesia [Unknown]
  - Muscular weakness [Not Recovered/Not Resolved]
  - Immunodeficiency [Not Recovered/Not Resolved]
  - Multiple sclerosis relapse [Not Recovered/Not Resolved]

NARRATIVE: CASE EVENT DATE: 201412
